FAERS Safety Report 22213710 (Version 1)
Quarter: 2023Q2

REPORT INFORMATION
  Report Type: Spontaneous
  Country: ES (occurrence: ES)
  Receive Date: 20230414
  Receipt Date: 20230414
  Transmission Date: 20230721
  Serious: Yes (Other)
  Sender: FDA-Public Use
  Company Number: None

PATIENT
  Age: 48 Year
  Sex: Female
  Weight: 69 kg

DRUGS (4)
  1. IMBRUVICA [Suspect]
     Active Substance: IBRUTINIB
     Indication: Chronic lymphocytic leukaemia
     Dosage: 1.0 COMP C/24 H
     Route: 048
     Dates: start: 20170322, end: 20230309
  2. SERTRALINE HYDROCHLORIDE [Concomitant]
     Active Substance: SERTRALINE HYDROCHLORIDE
     Indication: Adjustment disorder with depressed mood
     Dosage: 100.0 MG C/24 H
     Route: 048
     Dates: start: 20221230
  3. LEVOTHYROXINE SODIUM [Concomitant]
     Active Substance: LEVOTHYROXINE SODIUM
     Indication: Neoplasm malignant
     Dosage: 112.0 MCG A-DE
     Route: 048
     Dates: start: 20160927
  4. LEVOTHYROXINE SODIUM [Concomitant]
     Active Substance: LEVOTHYROXINE SODIUM
     Indication: Neoplasm malignant
     Dosage: 100.0 MCG C/48 HORAS
     Route: 048
     Dates: start: 20191109

REACTIONS (2)
  - Arthritis [Recovering/Resolving]
  - Arthralgia [Recovering/Resolving]

NARRATIVE: CASE EVENT DATE: 20210303
